FAERS Safety Report 25416391 (Version 1)
Quarter: 2025Q2

REPORT INFORMATION
  Report Type: Spontaneous
  Country: ES (occurrence: ES)
  Receive Date: 20250610
  Receipt Date: 20250610
  Transmission Date: 20250716
  Serious: Yes (Other)
  Sender: BOEHRINGER INGELHEIM
  Company Number: None

PATIENT
  Age: 54 Year
  Sex: Female

DRUGS (8)
  1. SYNJARDY [Suspect]
     Active Substance: EMPAGLIFLOZIN\METFORMIN HYDROCHLORIDE
     Indication: Type 2 diabetes mellitus
     Route: 048
     Dates: start: 20241230, end: 20250519
  2. RYBELSUS 7 MG COMPRIMIDOS, 30 comprimidos [Concomitant]
     Indication: Product used for unknown indication
     Route: 048
     Dates: start: 20250127
  3. PLANTAGO OVATA CINFA 3,5 g POLVO PARA SUSPENSION ORAL, 30 sobres [Concomitant]
     Indication: Product used for unknown indication
     Route: 048
     Dates: start: 20240529
  4. PACLIMEDAC 6 mg/ml CONCENTRADO PARA SOLUCION PARA PERFUSION EFG [Concomitant]
     Indication: Product used for unknown indication
     Route: 048
     Dates: start: 20210505
  5. LISINOPRIL / HIDROCLOROTIAZIDA TEVA-RATIOPHARM 20 / 12,5 mg COMPRIMIDO [Concomitant]
     Indication: Product used for unknown indication
     Route: 048
     Dates: start: 20210309
  6. OMEPRAZOL STADA 20 mg CAPSULAS DURAS GASTRORRESISTENTES EFG , [Concomitant]
     Indication: Product used for unknown indication
     Route: 048
     Dates: start: 20170706
  7. DEMILOS 600 MG/1000 UI COMPRIMIDOS BUCODISPERSABLES , 30 comprimidos [Concomitant]
     Indication: Product used for unknown indication
     Route: 048
     Dates: start: 20170502
  8. ATORVASTATINA STADAGEN 10 MG COMPRIMIDOS RECUBIERTOS CON PELICULA EFG [Concomitant]
     Indication: Product used for unknown indication
     Route: 048
     Dates: start: 20150429

REACTIONS (1)
  - Candida infection [Unknown]

NARRATIVE: CASE EVENT DATE: 20250514
